FAERS Safety Report 7306099-7 (Version None)
Quarter: 2011Q1

REPORT INFORMATION
  Report Type: 
  Country: None (occurrence: None)
  Receive Date: 20110222
  Receipt Date: 20110217
  Transmission Date: 20110831
  Serious: Yes (Death)
  Sender: FDA-Public Use
  Company Number: QA-MERCK-1102USA02308

PATIENT
  Age: 39 Year
  Sex: Male

DRUGS (6)
  1. DECADRON [Suspect]
     Indication: MULTIPLE MYELOMA
     Dosage: GIVEN ON DAY 1-4, 9-12, 17-21
     Route: 048
     Dates: start: 20070101
  2. DECADRON [Suspect]
     Indication: PROPHYLAXIS
     Dosage: GIVEN ON DAY 1-4, 9-12, 17-21
     Route: 048
     Dates: start: 20070101
  3. OMEPRAZOLE [Concomitant]
     Route: 048
  4. DECADRON [Suspect]
     Dosage: BETWEEN BOLUSES
     Route: 048
     Dates: start: 20070101
  5. SULFAMETHOXAZOLE AND TRIMETHOPRIM [Concomitant]
     Route: 048
  6. DECADRON [Suspect]
     Dosage: BETWEEN BOLUSES
     Route: 048
     Dates: start: 20070101

REACTIONS (12)
  - CSF TEST ABNORMAL [None]
  - PNEUMONIA FUNGAL [None]
  - RESPIRATORY FAILURE [None]
  - CANDIDA TEST POSITIVE [None]
  - URINARY TRACT INFECTION PSEUDOMONAL [None]
  - MUSCULOSKELETAL STIFFNESS [None]
  - MENINGITIS ASEPTIC [None]
  - PNEUMONIA BACTERIAL [None]
  - STRONGYLOIDIASIS [None]
  - SEPTIC SHOCK [None]
  - HERPES VIRUS INFECTION [None]
  - NEUROLOGICAL SYMPTOM [None]
